FAERS Safety Report 14554280 (Version 1)
Quarter: 2018Q1

REPORT INFORMATION
  Report Type: Spontaneous
  Country: US (occurrence: US)
  Receive Date: 20180220
  Receipt Date: 20180220
  Transmission Date: 20180509
  Serious: No
  Sender: FDA-Public Use
  Company Number: US-TEVA-2018-US-859084

PATIENT
  Sex: Female
  Weight: 61.23 kg

DRUGS (6)
  1. ESTRADIOL. [Suspect]
     Active Substance: ESTRADIOL
     Dosage: WAS ON 1MG,SHE HAS COME DOWN TO 0.5MG.EVERYTIME SHE TRIES TO COME OFF OF THE MEDICINE, HER HOT FLASH
     Route: 048
  2. CHANTIX [Concomitant]
     Active Substance: VARENICLINE TARTRATE
     Dosage: 1MG TWICE A DAY
     Route: 048
     Dates: start: 20180101
  3. LISINOPRIL. [Concomitant]
     Active Substance: LISINOPRIL
     Indication: HYPERTENSION
     Route: 048
  4. PRIMIDONE. [Concomitant]
     Active Substance: PRIMIDONE
     Indication: ESSENTIAL TREMOR
     Route: 048
  5. ESTRADIOL. [Suspect]
     Active Substance: ESTRADIOL
     Indication: HYSTERECTOMY
     Dosage: WAS ON 1MG,SHE HAS COME DOWN TO 0.5MG.EVERYTIME SHE TRIES TO COME OFF OF THE MEDICINE, HER HOT FLASH
     Route: 048
  6. CHANTIX [Concomitant]
     Active Substance: VARENICLINE TARTRATE
     Indication: SMOKING CESSATION THERAPY
     Dosage: 0.5MG ONCE A DAY FOR 11 TABLETS
     Route: 048
     Dates: start: 20180101

REACTIONS (1)
  - Hot flush [Unknown]
